FAERS Safety Report 20597957 (Version 1)
Quarter: 2022Q1

REPORT INFORMATION
  Report Type: Spontaneous
  Country: JP (occurrence: JP)
  Receive Date: 20220315
  Receipt Date: 20220315
  Transmission Date: 20220423
  Serious: Yes (Other)
  Sender: FDA-Public Use
  Company Number: JP-PFIZER INC-202200397884

PATIENT
  Sex: Male

DRUGS (4)
  1. LYRICA [Suspect]
     Active Substance: PREGABALIN
     Dosage: 150 MG
     Route: 048
  2. LYRICA [Suspect]
     Active Substance: PREGABALIN
     Dosage: 75 MG
     Route: 048
     Dates: start: 2020, end: 2020
  3. LYRICA [Suspect]
     Active Substance: PREGABALIN
     Dosage: 25 MG(ONLY IN THE MORNING AND EVENING, CONTROLLED AT 25MG AT A TIME)
     Route: 048
     Dates: start: 2021, end: 2021
  4. LYRICA [Suspect]
     Active Substance: PREGABALIN
     Dosage: UNK
     Dates: end: 20220217

REACTIONS (6)
  - Coordination abnormal [Unknown]
  - Gait inability [Unknown]
  - Rib fracture [Recovered/Resolved]
  - Dizziness [Recovered/Resolved]
  - Fall [Recovered/Resolved]
  - Malaise [Recovered/Resolved]

NARRATIVE: CASE EVENT DATE: 20200101
